FAERS Safety Report 5925469-2 (Version None)
Quarter: 2008Q4

REPORT INFORMATION
  Report Type: 
  Country: None (occurrence: None)
  Receive Date: 20081021
  Receipt Date: 20081014
  Transmission Date: 20090506
  Serious: Yes (Other)
  Sender: FDA-Public Use
  Company Number: US-JNJFOC-20081003782

PATIENT
  Age: 74 Year
  Sex: Female
  Weight: 108.86 kg

DRUGS (7)
  1. IMODIUM A-D EZ CHEWS [Suspect]
     Route: 048
  2. IMODIUM A-D EZ CHEWS [Suspect]
     Route: 048
  3. IMODIUM A-D EZ CHEWS [Suspect]
     Indication: DIARRHOEA
     Route: 048
  4. METOPROLOL TARTRATE [Concomitant]
     Indication: HYPERTENSION
  5. LISINOPRIL [Concomitant]
     Indication: HYPERTENSION
  6. PLAVIX [Concomitant]
     Indication: ANTICOAGULANT THERAPY
  7. ASPIRIN [Concomitant]
     Indication: ANTICOAGULANT THERAPY

REACTIONS (2)
  - INCORRECT DOSE ADMINISTERED [None]
  - RECTAL HAEMORRHAGE [None]
